FAERS Safety Report 4520423-X (Version None)
Quarter: 2004Q4

REPORT INFORMATION
  Report Type: 
  Country: None (occurrence: None)
  Receive Date: 20041203
  Receipt Date: 20041117
  Transmission Date: 20050328
  Serious: Yes (Death, Hospitalization)
  Sender: FDA-Public Use
  Company Number: 207932

PATIENT
  Age: 54 Year
  Sex: Female

DRUGS (7)
  1. AVONEX [Suspect]
     Indication: MULTIPLE SCLEROSIS
     Dosage: QW;IM
     Route: 030
     Dates: start: 20000101, end: 20041107
  2. LIORESAL [Concomitant]
  3. TRENTAL [Concomitant]
  4. NEUROBION [Concomitant]
  5. NEURONTIN [Concomitant]
  6. DILENA [Concomitant]
  7. VITAMIN COMPLEX [Concomitant]

REACTIONS (5)
  - CARDIO-RESPIRATORY ARREST [None]
  - COMA [None]
  - CONDITION AGGRAVATED [None]
  - HAEMOLYTIC ANAEMIA [None]
  - JAUNDICE [None]
